FAERS Safety Report 19392430 (Version 2)
Quarter: 2021Q2

REPORT INFORMATION
  Report Type: Spontaneous
  Country: US (occurrence: US)
  Receive Date: 20210608
  Receipt Date: 20210616
  Transmission Date: 20210717
  Serious: Yes (Other)
  Sender: FDA-Public Use
  Company Number: US-ASTRAZENECA-2021A497734

PATIENT
  Age: 61 Year
  Sex: Male
  Weight: 62.6 kg

DRUGS (2)
  1. I?THYROXAMINE [Concomitant]
     Indication: THYROID DISORDER
  2. TAGRISSO [Suspect]
     Active Substance: OSIMERTINIB
     Indication: NON-SMALL CELL LUNG CANCER
     Route: 048
     Dates: start: 20181120, end: 20200608

REACTIONS (4)
  - Malignant neoplasm progression [Unknown]
  - Dyspnoea [Unknown]
  - Computerised tomogram abnormal [Unknown]
  - Pneumonitis [Recovered/Resolved]

NARRATIVE: CASE EVENT DATE: 2020
